FAERS Safety Report 7987896-1 (Version None)
Quarter: 2011Q4

REPORT INFORMATION
  Report Type: 
  Country: None (occurrence: None)
  Receive Date: 20111216
  Receipt Date: 20111207
  Transmission Date: 20120403
  Serious: Yes (Hospitalization)
  Sender: FDA-Public Use
  Company Number: CA-JNJFOC-20111205619

PATIENT
  Sex: Female
  Weight: 93.44 kg

DRUGS (5)
  1. MORPHINE SULFATE [Concomitant]
     Indication: PAIN
  2. SULFASALAZINE [Concomitant]
     Indication: COLITIS
  3. SIMVASTATIN [Concomitant]
     Indication: BREAKTHROUGH PAIN
  4. PAXIL [Concomitant]
     Indication: DEPRESSION
  5. REMICADE [Suspect]
     Indication: ANKYLOSING SPONDYLITIS
     Route: 042
     Dates: start: 20081202

REACTIONS (2)
  - FALL [None]
  - CERVICAL VERTEBRAL FRACTURE [None]
